FAERS Safety Report 17641447 (Version 1)
Quarter: 2020Q2

REPORT INFORMATION
  Report Type: Spontaneous
  Country: DE (occurrence: DE)
  Receive Date: 20200407
  Receipt Date: 20200407
  Transmission Date: 20200713
  Serious: Yes (Other)
  Sender: FDA-Public Use
  Company Number: DE-PURDUE-USA-2020-0150784

PATIENT
  Age: 51 Year
  Sex: Male

DRUGS (4)
  1. FENOFIBRATE. [Suspect]
     Active Substance: FENOFIBRATE
     Indication: BLOOD TRIGLYCERIDES INCREASED
     Route: 048
  2. INSULIN [Concomitant]
     Active Substance: INSULIN NOS
     Indication: PRODUCT USED FOR UNKNOWN INDICATION
     Route: 042
  3. OMEGA 3                            /01334101/ [Suspect]
     Active Substance: OMEGA-3 FATTY ACIDS
     Indication: BLOOD TRIGLYCERIDES INCREASED
     Route: 048
  4. HEPARIN [Suspect]
     Active Substance: HEPARIN SODIUM
     Indication: BLOOD TRIGLYCERIDES INCREASED
     Route: 065

REACTIONS (1)
  - Hepatotoxicity [Recovered/Resolved]
